FAERS Safety Report 12425179 (Version 11)
Quarter: 2019Q2

REPORT INFORMATION
  Report Type: Report from Study
  Country: JP (occurrence: JP)
  Receive Date: 20160601
  Receipt Date: 20190425
  Transmission Date: 20190711
  Serious: Yes (Hospitalization, Other)
  Sender: FDA-Public Use
  Company Number: JP-INCYTE CORPORATION-2015IN005146

PATIENT

DRUGS (28)
  1. JAKAVI [Suspect]
     Active Substance: RUXOLITINIB
     Dosage: 5 MG, BID
     Route: 048
     Dates: start: 20150630, end: 20150706
  2. JAKAVI [Suspect]
     Active Substance: RUXOLITINIB
     Dosage: 5 MG, BID
     Route: 048
     Dates: start: 20150818, end: 20150928
  3. RED CELLS MAP [Concomitant]
     Active Substance: HUMAN RED BLOOD CELL
     Dosage: 2 IU, QD
     Route: 065
     Dates: start: 20160909, end: 20160909
  4. RED CELLS MAP [Concomitant]
     Active Substance: HUMAN RED BLOOD CELL
     Dosage: 2 IU, QD
     Route: 065
     Dates: start: 20160920, end: 20160920
  5. JAKAVI [Suspect]
     Active Substance: RUXOLITINIB
     Dosage: 5 MG, BID
     Route: 048
     Dates: start: 20151006
  6. RED CELLS MAP [Concomitant]
     Active Substance: HUMAN RED BLOOD CELL
     Dosage: 2 IU, QD
     Route: 065
     Dates: start: 20151103, end: 20151103
  7. RED CELLS MAP [Concomitant]
     Active Substance: HUMAN RED BLOOD CELL
     Dosage: 2 IU, QD
     Route: 065
     Dates: start: 20171128, end: 20171128
  8. RED CELLS MAP [Concomitant]
     Active Substance: HUMAN RED BLOOD CELL
     Dosage: 2 IU, QD
     Route: 065
     Dates: start: 20161115, end: 20161115
  9. RED CELLS MAP [Concomitant]
     Active Substance: HUMAN RED BLOOD CELL
     Dosage: 2 IU, QD
     Route: 065
     Dates: start: 20161213, end: 20161213
  10. RED CELLS MAP [Concomitant]
     Active Substance: HUMAN RED BLOOD CELL
     Dosage: 2 IU, QD
     Route: 065
     Dates: start: 20180306, end: 20180306
  11. JAKAVI [Suspect]
     Active Substance: RUXOLITINIB
     Dosage: 5 MG, QD
     Route: 048
     Dates: start: 20150929, end: 20151005
  12. RED CELLS MAP [Concomitant]
     Active Substance: HUMAN RED BLOOD CELL
     Dosage: 2 IU, QD
     Route: 065
     Dates: start: 20170822, end: 20170822
  13. JAKAVI [Suspect]
     Active Substance: RUXOLITINIB
     Dosage: 5 MG, BID
     Route: 048
     Dates: start: 20150714, end: 20150721
  14. RED CELLS MAP [Concomitant]
     Active Substance: HUMAN RED BLOOD CELL
     Indication: MYELOFIBROSIS
     Dosage: 2 IU, QD
     Route: 065
     Dates: start: 20150624, end: 20150624
  15. RED CELLS MAP [Concomitant]
     Active Substance: HUMAN RED BLOOD CELL
     Dosage: 2 IU, QD
     Route: 065
     Dates: start: 20160818, end: 20160818
  16. RED CELLS MAP [Concomitant]
     Active Substance: HUMAN RED BLOOD CELL
     Dosage: 2 IU, QD
     Route: 065
     Dates: start: 20171024, end: 20171024
  17. RED CELLS MAP [Concomitant]
     Active Substance: HUMAN RED BLOOD CELL
     Dosage: 2 IU, QD
     Route: 065
     Dates: start: 20151213, end: 20151213
  18. RED CELLS MAP [Concomitant]
     Active Substance: HUMAN RED BLOOD CELL
     Dosage: 2 IU, QD
     Route: 065
     Dates: start: 20160726, end: 20160726
  19. JAKAVI [Suspect]
     Active Substance: RUXOLITINIB
     Dosage: 5 MG, QD
     Route: 048
     Dates: start: 20150707, end: 20150713
  20. JAKAVI [Suspect]
     Active Substance: RUXOLITINIB
     Dosage: 5 MG, QD
     Route: 048
     Dates: start: 20150722, end: 20150817
  21. JAKAVI [Suspect]
     Active Substance: RUXOLITINIB
     Indication: MYELOFIBROSIS
     Dosage: 5 MG, QD
     Route: 048
     Dates: start: 20150602, end: 20150629
  22. RED CELLS MAP [Concomitant]
     Active Substance: HUMAN RED BLOOD CELL
     Dosage: 2 IU, QD
     Route: 065
     Dates: start: 20160209, end: 20160209
  23. RED CELLS MAP [Concomitant]
     Active Substance: HUMAN RED BLOOD CELL
     Dosage: 2 IU, QD
     Route: 065
     Dates: start: 20160314, end: 20160314
  24. RED CELLS MAP [Concomitant]
     Active Substance: HUMAN RED BLOOD CELL
     Dosage: 2 IU, QD
     Route: 065
     Dates: start: 20171003, end: 20171003
  25. RED CELLS MAP [Concomitant]
     Active Substance: HUMAN RED BLOOD CELL
     Dosage: 2 IU, QD
     Route: 065
     Dates: start: 20160705, end: 20160705
  26. RED CELLS MAP [Concomitant]
     Active Substance: HUMAN RED BLOOD CELL
     Dosage: 2 IU, QD
     Route: 065
     Dates: start: 20161004, end: 20161004
  27. RED CELLS MAP [Concomitant]
     Active Substance: HUMAN RED BLOOD CELL
     Dosage: 2 IU, QD
     Route: 065
     Dates: start: 20161018, end: 20161018
  28. RED CELLS MAP [Concomitant]
     Active Substance: HUMAN RED BLOOD CELL
     Dosage: 2 IU, QD
     Route: 065
     Dates: start: 20170307, end: 20170307

REACTIONS (29)
  - Weight increased [Unknown]
  - Cardiac failure congestive [Recovering/Resolving]
  - Cystitis [Recovered/Resolved]
  - Blood potassium increased [Recovering/Resolving]
  - Malaise [Unknown]
  - Cystitis [Recovered/Resolved]
  - Diastolic dysfunction [Recovering/Resolving]
  - Blood pressure increased [Unknown]
  - Dyspnoea [Recovered/Resolved]
  - Asthenia [Recovering/Resolving]
  - Peripheral swelling [Unknown]
  - Gamma-glutamyltransferase increased [Unknown]
  - Blood lactate dehydrogenase increased [Unknown]
  - Pyrexia [Recovered/Resolved]
  - Mitral valve incompetence [Recovering/Resolving]
  - Vomiting [Unknown]
  - Haemoglobin decreased [Unknown]
  - Aspartate aminotransferase increased [Recovered/Resolved]
  - Alanine aminotransferase increased [Recovered/Resolved]
  - Pericardial effusion [Recovering/Resolving]
  - Blood alkaline phosphatase increased [Not Recovered/Not Resolved]
  - Alanine aminotransferase increased [Not Recovered/Not Resolved]
  - Aspartate aminotransferase increased [Recovered/Resolved]
  - Diarrhoea [Unknown]
  - Gait disturbance [Unknown]
  - Pulmonary congestion [Unknown]
  - Aspartate aminotransferase increased [Recovered/Resolved]
  - Chills [Unknown]
  - Gastroenteritis [Recovered/Resolved]

NARRATIVE: CASE EVENT DATE: 20150609
